FAERS Safety Report 9175102 (Version 1)
Quarter: 2013Q1

REPORT INFORMATION
  Report Type: Spontaneous
  Country: IT (occurrence: None)
  Receive Date: 20130315
  Receipt Date: 20130315
  Transmission Date: 20140127
  Serious: Yes (Hospitalization, Other)
  Sender: FDA-Public Use
  Company Number: 2013-04133

PATIENT
  Age: 55 Year
  Sex: Female

DRUGS (4)
  1. OXALIPLATIN [Suspect]
     Indication: RECTAL ADENOCARCINOMA
     Dosage: UNKNOWN, 2 CYCLES, INTRAVENOUS
     Route: 042
  2. OXALIPLATIN [Suspect]
     Indication: RECTAL ADENOCARCINOMA
     Dosage: UNKNOWN, 2 CYCLES, INTRAVENOUS
     Route: 042
  3. CAPECITABINE (UNKNOWN) (CAPECITABINE) UNK, UNKUNK [Suspect]
     Indication: RECTAL CANCER
     Route: 048
  4. CAPECITABINE (UNKNOWN) (CAPECITABINE) UNK, UNKUNK [Suspect]
     Indication: RECTAL CANCER
     Route: 048

REACTIONS (8)
  - Toxicity to various agents [None]
  - Drug interaction [None]
  - Peripheral sensorimotor neuropathy [None]
  - Myopathy toxic [None]
  - Left ventricular failure [None]
  - Decreased appetite [None]
  - Asthenia [None]
  - Paraplegia [None]
